FAERS Safety Report 17306765 (Version 1)
Quarter: 2020Q1

REPORT INFORMATION
  Report Type: Spontaneous
  Country: US (occurrence: US)
  Receive Date: 20200123
  Receipt Date: 20200123
  Transmission Date: 20200409
  Serious: No
  Sender: FDA-Public Use
  Company Number: US-ELI_LILLY_AND_COMPANY-US202001000221

PATIENT
  Sex: Female

DRUGS (3)
  1. GABAPENTIN. [Concomitant]
     Active Substance: GABAPENTIN
     Indication: BASILAR MIGRAINE
     Dosage: UNK, UNKNOWN
  2. EMGALITY [Suspect]
     Active Substance: GALCANEZUMAB-GNLM
     Indication: BASILAR MIGRAINE
     Dosage: UNK, UNKNOWN
     Route: 065
     Dates: start: 201909
  3. BUTORPHANOL [Concomitant]
     Active Substance: BUTORPHANOL
     Indication: BASILAR MIGRAINE
     Dosage: UNK, PRN

REACTIONS (1)
  - Drug ineffective [Not Recovered/Not Resolved]
